FAERS Safety Report 6127820-X (Version None)
Quarter: 2009Q1

REPORT INFORMATION
  Report Type: 
  Country: None (occurrence: None)
  Receive Date: 20090320
  Receipt Date: 20090320
  Transmission Date: 20090719
  Serious: Yes (Other)
  Sender: FDA-Public Use
  Company Number: None

PATIENT
  Age: 66 Year
  Sex: Female
  Weight: 67.586 kg

DRUGS (1)
  1. CEFDINIR [Suspect]
     Dosage: 300MG 1 X 2 DAILY

REACTIONS (3)
  - INSOMNIA [None]
  - NIGHTMARE [None]
  - PRODUCT QUALITY ISSUE [None]
